FAERS Safety Report 15275779 (Version 1)
Quarter: 2018Q3

REPORT INFORMATION
  Report Type: Spontaneous
  Country: JP (occurrence: JP)
  Receive Date: 20180814
  Receipt Date: 20180814
  Transmission Date: 20181010
  Serious: Yes (Other)
  Sender: FDA-Public Use
  Company Number: JP-PFIZER INC-2018321664

PATIENT
  Age: 15 Year
  Sex: Male

DRUGS (7)
  1. CYCLOPHOSPHAMIDE. [Suspect]
     Active Substance: CYCLOPHOSPHAMIDE
     Indication: JUVENILE IDIOPATHIC ARTHRITIS
     Dosage: 200 MG/KG, (OVER 1 H ON DAYS ?5, ?4, ?3 AND ?2)
     Route: 042
  2. METHOTREXATE SODIUM. [Suspect]
     Active Substance: METHOTREXATE SODIUM
     Indication: JUVENILE IDIOPATHIC ARTHRITIS
     Dosage: 1.8 MG/M2, WEEKLY (AS A SINGLE DOSE)
  3. PREDNISOLONE. [Suspect]
     Active Substance: PREDNISOLONE
     Dosage: 20 MG, ALTERNATE DAY
  4. ANTILYMPHOCYTE GLOBULIN [Suspect]
     Active Substance: THYMOCYTE IMMUNE GLOBULIN NOS
     Indication: JUVENILE IDIOPATHIC ARTHRITIS
     Dosage: 45 MG/KG, (ON DAYS ?5, ?4 AND ?3)
  5. PREDNISOLONE. [Suspect]
     Active Substance: PREDNISOLONE
     Dosage: 60 MG/M2, DAILY (INCREASED)
  6. PREDNISOLONE. [Suspect]
     Active Substance: PREDNISOLONE
     Indication: JUVENILE IDIOPATHIC ARTHRITIS
     Dosage: 20 MG, DAILY (DECREASED)
  7. METHYLPREDNISOLONE SODIUM SUCCINATE. [Suspect]
     Active Substance: METHYLPREDNISOLONE SODIUM SUCCINATE
     Indication: JUVENILE IDIOPATHIC ARTHRITIS
     Dosage: 250 MG, DAILY (30 MIN BEFORE EACH DOSE OF ALG)
     Route: 042

REACTIONS (6)
  - Delayed puberty [Unknown]
  - Drug ineffective [Unknown]
  - Psychological trauma [Unknown]
  - Body height below normal [Unknown]
  - Cataract [Unknown]
  - Nephrolithiasis [Unknown]
